FAERS Safety Report 4404935-5 (Version None)
Quarter: 2004Q3

REPORT INFORMATION
  Report Type: 
  Country: None (occurrence: None)
  Receive Date: 20040716
  Receipt Date: 20040707
  Transmission Date: 20050211
  Serious: Yes (Other)
  Sender: FDA-Public Use
  Company Number: 2004222772US

PATIENT
  Sex: Female

DRUGS (1)
  1. CELEBREX [Suspect]
     Indication: OSTEOARTHRITIS
     Dosage: 100 MG TO200 MG, ORAL
     Route: 048
     Dates: start: 20030101

REACTIONS (3)
  - EPISTAXIS [None]
  - HYPERTENSION [None]
  - RETINAL ARTERY OCCLUSION [None]
